FAERS Safety Report 5934904-5 (Version None)
Quarter: 2008Q4

REPORT INFORMATION
  Report Type: 
  Country: None (occurrence: None)
  Receive Date: 20081027
  Receipt Date: 20081016
  Transmission Date: 20090506
  Serious: Yes (Hospitalization)
  Sender: FDA-Public Use
  Company Number: US024047

PATIENT
  Age: 58 Year
  Sex: Male
  Weight: 80.2 kg

DRUGS (4)
  1. TRISENOX [Suspect]
     Indication: MULTIPLE MYELOMA
     Dosage: INTRAVENOUS DRIP
     Route: 041
     Dates: start: 20080407, end: 20080411
  2. ASCORBIC ACID [Concomitant]
  3. ASPIRIN [Concomitant]
  4. REGLAN [Concomitant]

REACTIONS (9)
  - AUTOIMMUNE DISORDER [None]
  - BODY TEMPERATURE INCREASED [None]
  - CHEST DISCOMFORT [None]
  - LIVER FUNCTION TEST ABNORMAL [None]
  - PANCYTOPENIA [None]
  - PERICARDITIS [None]
  - VIRAL INFECTION [None]
  - WHEEZING [None]
  - WHITE BLOOD CELL COUNT DECREASED [None]
